FAERS Safety Report 9257510 (Version 1)
Quarter: 2013Q1

REPORT INFORMATION
  Report Type: Spontaneous
  Country: US (occurrence: US)
  Receive Date: 20121212
  Receipt Date: 20121212
  Transmission Date: 20140127
  Serious: No
  Sender: FDA-Public Use
  Company Number: 1210USA005002

PATIENT
  Age: 55 Year
  Sex: Male

DRUGS (2)
  1. VICTRELIS (BOCEPREVIR) CAPSULE [Suspect]
     Indication: HEPATITIS C
     Dates: start: 20120201, end: 20120203
  2. RIBAVIRIN (RIBAVIRIN) CAPSULE [Suspect]
     Indication: HEPATITIS C
     Route: 048
     Dates: start: 20120201, end: 20120203

REACTIONS (12)
  - Pain [None]
  - Renal pain [None]
  - Prostatic pain [None]
  - Sciatica [None]
  - Confusional state [None]
  - Weight increased [None]
  - Weight increased [None]
  - Speech disorder [None]
  - Memory impairment [None]
  - Headache [None]
  - Abdominal pain upper [None]
  - Gastric disorder [None]
